FAERS Safety Report 8317363-7 (Version None)
Quarter: 2012Q2

REPORT INFORMATION
  Report Type: 
  Country: None (occurrence: None)
  Receive Date: 20120427
  Receipt Date: 20120420
  Transmission Date: 20120825
  Serious: Yes (Death)
  Sender: FDA-Public Use
  Company Number: DE-UCBSA-055847

PATIENT
  Age: 31 Year
  Sex: Female

DRUGS (3)
  1. VIMPAT [Suspect]
  2. LAMOTRGINE [Concomitant]
  3. ANTIEPILEPTICS [Concomitant]

REACTIONS (1)
  - DEATH [None]
